FAERS Safety Report 8443153-0 (Version None)
Quarter: 2012Q2

REPORT INFORMATION
  Report Type: 
  Country: None (occurrence: None)
  Receive Date: 20120615
  Receipt Date: 20120611
  Transmission Date: 20120825
  Serious: Yes (Other)
  Sender: FDA-Public Use
  Company Number: FI-AMGEN-FINSP2012036255

PATIENT
  Age: 43 Year
  Sex: Male

DRUGS (1)
  1. ARANESP [Suspect]
     Indication: PRODUCT USED FOR UNKNOWN INDICATION
     Dosage: 100 MUG, EVERY 5 DAYS
     Dates: start: 20070101

REACTIONS (1)
  - THERAPEUTIC RESPONSE DECREASED [None]
